FAERS Safety Report 7481555-X (Version None)
Quarter: 2011Q2

REPORT INFORMATION
  Report Type: 
  Country: None (occurrence: None)
  Receive Date: 20110516
  Receipt Date: 20110505
  Transmission Date: 20111010
  Serious: Yes (Hospitalization, Other)
  Sender: FDA-Public Use
  Company Number: SE-JNJFOC-20110501988

PATIENT
  Sex: Female

DRUGS (5)
  1. GEMCITABINE [Suspect]
     Indication: MYCOSIS FUNGOIDES
     Route: 042
     Dates: start: 20110303
  2. GEMCITABINE [Suspect]
     Route: 042
     Dates: start: 20100722
  3. DOXORUBICIN HYDROCHLORIDE [Suspect]
     Indication: MYCOSIS FUNGOIDES
     Route: 042
     Dates: start: 20110224
  4. GEMCITABINE [Suspect]
     Route: 042
     Dates: start: 20110224
  5. DOXORUBICIN HYDROCHLORIDE [Suspect]
     Route: 042
     Dates: start: 20100722

REACTIONS (6)
  - OFF LABEL USE [None]
  - EAR DISCOMFORT [None]
  - DERMATITIS BULLOUS [None]
  - OTORRHOEA [None]
  - AURICULAR SWELLING [None]
  - MYCOSIS FUNGOIDES [None]
